FAERS Safety Report 8546111-0 (Version None)
Quarter: 2012Q3

REPORT INFORMATION
  Report Type: 
  Country: None (occurrence: None)
  Receive Date: 20120727
  Receipt Date: 20111209
  Transmission Date: 20120928
  Serious: No
  Sender: FDA-Public Use
  Company Number: US-ASTRAZENECA-2011SE74652

PATIENT
  Age: 47 Year
  Sex: Female
  Weight: 72.6 kg

DRUGS (7)
  1. FLUOXETINE HCL [Concomitant]
     Indication: ANXIETY
  2. SEROQUEL [Suspect]
     Indication: DEPRESSION
     Dosage: 25 MG TID (1 TABLET IN THE MORNING, 1 IN THE AFTERNOON, 2 AT NIGHT)
     Route: 048
  3. FLUOXETINE HCL [Concomitant]
     Indication: SLEEP DISORDER
  4. AMPHETAMINES [Concomitant]
     Indication: ATTENTION DEFICIT/HYPERACTIVITY DISORDER
  5. SEROQUEL [Suspect]
     Indication: SLEEP DISORDER
     Dosage: 25 MG TID (1 TABLET IN THE MORNING, 1 IN THE AFTERNOON, 2 AT NIGHT)
     Route: 048
  6. FLUOXETINE HCL [Concomitant]
     Indication: DEPRESSION
  7. SEROQUEL [Suspect]
     Indication: ANXIETY
     Dosage: 25 MG TID (1 TABLET IN THE MORNING, 1 IN THE AFTERNOON, 2 AT NIGHT)
     Route: 048

REACTIONS (4)
  - INSOMNIA [None]
  - THERAPEUTIC RESPONSE UNEXPECTED [None]
  - OFF LABEL USE [None]
  - DRUG DOSE OMISSION [None]
